FAERS Safety Report 7337505-X (Version None)
Quarter: 2011Q1

REPORT INFORMATION
  Report Type: 
  Country: None (occurrence: None)
  Receive Date: 20110308
  Receipt Date: 20110301
  Transmission Date: 20110831
  Serious: Yes (Death, Other)
  Sender: FDA-Public Use
  Company Number: CN-GENZYME-FLUD-1000747

PATIENT
  Age: 14 Year
  Sex: Male

DRUGS (5)
  1. METHYL CCNU [Suspect]
     Indication: STEM CELL TRANSPLANT
     Dosage: 250 MG/M2, ONCE ON DAY -3
     Route: 048
  2. METHOTREXATE [Concomitant]
     Indication: PROPHYLAXIS AGAINST GRAFT VERSUS HOST DISEASE
     Route: 065
  3. CYCLOSPORINE [Concomitant]
     Indication: PROPHYLAXIS AGAINST GRAFT VERSUS HOST DISEASE
     Route: 065
  4. FLUDARA [Suspect]
     Indication: STEM CELL TRANSPLANT
     Dosage: 50 MG, QD
     Route: 042
  5. MYCOPHENOLATE MOFETIL [Concomitant]
     Indication: PROPHYLAXIS AGAINST GRAFT VERSUS HOST DISEASE
     Route: 065

REACTIONS (4)
  - RESPIRATORY FAILURE [None]
  - PNEUMONIA VIRAL [None]
  - EPSTEIN-BARR VIRUS ASSOCIATED LYMPHOPROLIFERATIVE DISORDER [None]
  - PULMONARY ALVEOLAR HAEMORRHAGE [None]
